FAERS Safety Report 11717795 (Version 1)
Quarter: 2015Q4

REPORT INFORMATION
  Report Type: Spontaneous
  Country: US (occurrence: None)
  Receive Date: 20151109
  Receipt Date: 20151109
  Transmission Date: 20160304
  Serious: Yes (Hospitalization)
  Sender: FDA-Public Use
  Company Number: None

PATIENT
  Age: 28 Year
  Sex: Female

DRUGS (2)
  1. BACTRIM DS [Suspect]
     Active Substance: SULFAMETHOXAZOLE\TRIMETHOPRIM
     Indication: ARTHROPOD BITE
     Dates: start: 20131215, end: 20131219
  2. AUGMENTIN [Concomitant]
     Active Substance: AMOXICILLIN\CLAVULANATE POTASSIUM

REACTIONS (9)
  - Drug-induced liver injury [None]
  - Nephritis [None]
  - Abdominal pain [None]
  - Pyrexia [None]
  - Nausea [None]
  - Vomiting [None]
  - Rash maculo-papular [None]
  - Myalgia [None]
  - Lymphadenopathy [None]

NARRATIVE: CASE EVENT DATE: 20131223
